FAERS Safety Report 9447259 (Version 3)
Quarter: 2014Q1

REPORT INFORMATION
  Report Type: Report from Study
  Country: DE (occurrence: DE)
  Receive Date: 20130808
  Receipt Date: 20140323
  Transmission Date: 20141002
  Serious: Yes (Hospitalization)
  Sender: FDA-Public Use
  Company Number: DE-AMGEN-DEUCT2013055108

PATIENT
  Age: 72 Year
  Sex: Male

DRUGS (6)
  1. ETANERCEPT [Suspect]
     Indication: PRODUCT USED FOR UNKNOWN INDICATION
     Dosage: 50 MG, EVERY 8 DAYS
     Route: 065
     Dates: start: 201303, end: 201304
  2. MTX                                /00113801/ [Concomitant]
     Dosage: UNK
     Dates: end: 201304
  3. MTX                                /00113801/ [Concomitant]
     Dosage: 10 MG, WEEKLY
     Dates: start: 201307
  4. PREDNISOLON                        /00016201/ [Concomitant]
     Dosage: UNK
  5. OMEPRAZOLE [Concomitant]
     Dosage: UNK
  6. MARCUMAR [Concomitant]
     Dosage: UNK

REACTIONS (4)
  - Thrombocytopenia [Recovered/Resolved]
  - Bicytopenia [Recovered/Resolved]
  - Red blood cell count decreased [Recovered/Resolved]
  - Dyspnoea [Recovered/Resolved]
